FAERS Safety Report 7272719-9 (Version None)
Quarter: 2011Q1

REPORT INFORMATION
  Report Type: 
  Country: None (occurrence: None)
  Receive Date: 20110203
  Receipt Date: 20110131
  Transmission Date: 20110831
  Serious: Yes (Other)
  Sender: FDA-Public Use
  Company Number: US-PFIZER INC-2011022346

PATIENT
  Sex: Female
  Weight: 72.562 kg

DRUGS (3)
  1. EVISTA [Concomitant]
     Indication: OSTEOPOROSIS
     Dosage: UNK
     Route: 048
  2. LYRICA [Suspect]
     Indication: NERVE INJURY
     Dosage: 75 MG, 2X/DAY
     Route: 048
     Dates: start: 20110111, end: 20110125
  3. ACETYLSALICYLIC ACID [Concomitant]
     Indication: TRANSIENT ISCHAEMIC ATTACK
     Dosage: 75 MG, UNK

REACTIONS (5)
  - DEPRESSION [None]
  - VISUAL ACUITY REDUCED [None]
  - COGNITIVE DISORDER [None]
  - ASTHENIA [None]
  - FATIGUE [None]
